FAERS Safety Report 21303380 (Version 1)
Quarter: 2022Q3

REPORT INFORMATION
  Report Type: Spontaneous
  Country: US (occurrence: US)
  Receive Date: 20220907
  Receipt Date: 20220907
  Transmission Date: 20221027
  Serious: Yes (Other)
  Sender: FDA-Public Use
  Company Number: US-R-PHARM US LLC-2022RPM00010

PATIENT
  Sex: Male

DRUGS (1)
  1. IXEMPRA [Suspect]
     Active Substance: IXABEPILONE
     Indication: Breast cancer male
     Dosage: 80 MG EVERY 21 DAYS
     Dates: start: 20220607, end: 20220628

REACTIONS (4)
  - Performance status decreased [Unknown]
  - Terminal state [Unknown]
  - Product dose omission issue [Unknown]
  - Drug ineffective [Unknown]

NARRATIVE: CASE EVENT DATE: 20220101
